FAERS Safety Report 7162310-7 (Version None)
Quarter: 2010Q4

REPORT INFORMATION
  Report Type: 
  Country: None (occurrence: None)
  Receive Date: 20101215
  Receipt Date: 20101206
  Transmission Date: 20110411
  Serious: Yes (Hospitalization, Other)
  Sender: FDA-Public Use
  Company Number: US-ROCHE-746969

PATIENT

DRUGS (2)
  1. RIBAVIRIN [Suspect]
     Indication: HEPATITIS C
     Dosage: GIVEN IN TWO DIVIDED DOSES.
     Route: 048
  2. PEGINTERFERON ALFA-2B [Suspect]
     Indication: HEPATITIS C
     Route: 058

REACTIONS (10)
  - ANAEMIA [None]
  - CARDIOVASCULAR DISORDER [None]
  - DEPRESSION [None]
  - DRUG HYPERSENSITIVITY [None]
  - DYSPNOEA [None]
  - HYPERGLYCAEMIA [None]
  - INJECTION SITE ABSCESS [None]
  - NEUTROPENIA [None]
  - RETINOPATHY [None]
  - UPPER RESPIRATORY TRACT INFECTION [None]
